FAERS Safety Report 21251709 (Version 3)
Quarter: 2025Q1

REPORT INFORMATION
  Report Type: Report from Study
  Country: US (occurrence: US)
  Receive Date: 20220825
  Receipt Date: 20250115
  Transmission Date: 20250409
  Serious: Yes (Other)
  Sender: HRA PHARMA
  Company Number: US-HRAPH01-2022000411

PATIENT
  Age: 69 Year
  Sex: Female

DRUGS (22)
  1. LYSODREN [Suspect]
     Active Substance: MITOTANE
     Indication: Adrenal gland cancer
     Dosage: UPTITRATED TO 03 TABLETS (1500 MG TOTAL) BY MOUTH THREE TIMES DAILY
     Route: 048
     Dates: start: 20220121
  2. LYSODREN [Suspect]
     Active Substance: MITOTANE
     Indication: Adrenal gland cancer
     Dosage: 1 TABLET THREE TIMES DAILY
     Route: 048
  3. ALBUTEROL NEB 0.083% [Concomitant]
     Indication: Product used for unknown indication
  4. BENADRYL [Concomitant]
     Active Substance: DIPHENHYDRAMINE HYDROCHLORIDE
     Indication: Product used for unknown indication
  5. CARVEDILOL [Concomitant]
     Active Substance: CARVEDILOL
     Indication: Product used for unknown indication
  6. FUROSEMIDE [Concomitant]
     Active Substance: FUROSEMIDE
     Indication: Product used for unknown indication
  7. HYDROCORTTAB 20MG [Concomitant]
     Indication: Product used for unknown indication
  8. MECLIZINE TAB 12.5MG [Concomitant]
     Indication: Product used for unknown indication
  9. OMEPRAZOLE [Concomitant]
     Active Substance: OMEPRAZOLE
     Indication: Product used for unknown indication
  10. ONDANSETRON TAB 8MG ODT [Concomitant]
     Indication: Product used for unknown indication
  11. POTCHLORIDE TAB 20MEQ ER [Concomitant]
     Indication: Product used for unknown indication
  12. PROAIR HFA AER [Concomitant]
     Indication: Product used for unknown indication
  13. QVAR REDIHA AER 80MCG [Concomitant]
     Indication: Product used for unknown indication
  14. SERTRALINE TAB 25MG [Concomitant]
     Indication: Product used for unknown indication
  15. SINGULAIR TAB 10MG [Concomitant]
     Indication: Product used for unknown indication
  16. ZYRTEC ALLGY TAB 10MG [Concomitant]
     Indication: Product used for unknown indication
  17. KEYTRUDA INJ 100 MG/DM [Concomitant]
     Indication: Product used for unknown indication
  18. SAVAYSA TAB 60MG [Concomitant]
     Indication: Product used for unknown indication
  19. SPIRIVA CAP HANDIHLR [Concomitant]
     Indication: Product used for unknown indication
  20. XARELTO [Concomitant]
     Active Substance: RIVAROXABAN
     Indication: Product used for unknown indication
  21. MULTIVITAMIN TAB [Concomitant]
     Indication: Product used for unknown indication
  22. STOOL SOFTNR CAP 100MG [Concomitant]
     Indication: Product used for unknown indication

REACTIONS (9)
  - Neuropathy peripheral [Not Recovered/Not Resolved]
  - Constipation [Not Recovered/Not Resolved]
  - Peripheral swelling [Unknown]
  - Taste disorder [Unknown]
  - Balance disorder [Not Recovered/Not Resolved]
  - Decreased appetite [Not Recovered/Not Resolved]
  - Fatigue [Unknown]
  - Rash pruritic [Unknown]
  - Dizziness [Not Recovered/Not Resolved]

NARRATIVE: CASE EVENT DATE: 20220101
